FAERS Safety Report 14664058 (Version 1)
Quarter: 2018Q1

REPORT INFORMATION
  Report Type: Spontaneous
  Country: US (occurrence: US)
  Receive Date: 20180318
  Receipt Date: 20180318
  Transmission Date: 20180509
  Serious: Yes (Life-Threatening, Other)
  Sender: FDA-Public Use
  Company Number: None

PATIENT
  Age: 60 Year
  Sex: Female
  Weight: 76.5 kg

DRUGS (3)
  1. MODAFINIL. [Suspect]
     Active Substance: MODAFINIL
     Indication: FATIGUE
     Route: 048
  2. MODAFINIL. [Suspect]
     Active Substance: MODAFINIL
     Indication: FIBROMYALGIA
     Route: 048
  3. MODAFINIL. [Suspect]
     Active Substance: MODAFINIL
     Indication: SLEEP APNOEA SYNDROME
     Route: 048

REACTIONS (3)
  - Sedation [None]
  - Somnambulism [None]
  - Fatigue [None]

NARRATIVE: CASE EVENT DATE: 20180317
